FAERS Safety Report 13519056 (Version 1)
Quarter: 2017Q2

REPORT INFORMATION
  Report Type: Report from Study
  Country: US (occurrence: US)
  Receive Date: 20170505
  Receipt Date: 20170505
  Transmission Date: 20170830
  Serious: Yes (Hospitalization, Other)
  Sender: FDA-Public Use
  Company Number: US-ARIAD-2016US007250

PATIENT
  Age: 44 Year
  Sex: Male
  Weight: 94 kg

DRUGS (3)
  1. BOSUTINIB [Suspect]
     Active Substance: BOSUTINIB
     Indication: ACUTE MYELOID LEUKAEMIA
     Dosage: 500 MG, QD
     Route: 048
     Dates: start: 20170127, end: 20170217
  2. BOSUTINIB [Suspect]
     Active Substance: BOSUTINIB
     Dosage: 100 MG, QD
     Route: 048
     Dates: start: 20170307
  3. ICLUSIG [Suspect]
     Active Substance: PONATINIB
     Indication: ACUTE MYELOID LEUKAEMIA
     Dosage: 30 MG, QD
     Route: 048
     Dates: start: 20161020, end: 20161101

REACTIONS (17)
  - Non-cardiac chest pain [Unknown]
  - Decreased appetite [Unknown]
  - Asthenia [Unknown]
  - Anaemia [Unknown]
  - Headache [Unknown]
  - Dizziness [Unknown]
  - Sleep disorder due to general medical condition, insomnia type [Unknown]
  - Muscular weakness [Unknown]
  - Arthralgia [Unknown]
  - Myalgia [Unknown]
  - Blast crisis in myelogenous leukaemia [Unknown]
  - Feeling jittery [Unknown]
  - Fatigue [Unknown]
  - Pain [Unknown]
  - Nocturia [Unknown]
  - Feeling abnormal [Unknown]
  - Off label use [Unknown]

NARRATIVE: CASE EVENT DATE: 20170217
